FAERS Safety Report 8761956 (Version 2)
Quarter: 2012Q4

REPORT INFORMATION
  Report Type: 
  Country: US (occurrence: US)
  Receive Date: 20120830
  Receipt Date: 20120830
  Transmission Date: 20130627
  Serious: Yes (Hospitalization, Other)
  Sender: FDA-Public Use
  Company Number: US-009507513-1108USA03568

PATIENT

DRUGS (4)
  1. FOSAMAX [Suspect]
     Indication: OSTEOPOROSIS
     Dosage: 70 mg, QW
     Route: 048
     Dates: start: 2005, end: 2010
  2. MK-9278 [Concomitant]
     Indication: PRODUCT USED FOR UNKNOWN INDICATION
     Dates: start: 2005
  3. CALCIUM [Concomitant]
     Indication: PRODUCT USED FOR UNKNOWN INDICATION
     Dates: start: 2005
  4. LEVOTIROXINA (LEVOTHYROXINE SODIUM) [Concomitant]
     Indication: HYPOTHYROIDISM
     Dates: start: 1991

REACTIONS (24)
  - Femur fracture [Unknown]
  - Anaemia vitamin B12 deficiency [Unknown]
  - Basal cell carcinoma [Unknown]
  - Prophylaxis [Unknown]
  - Dermatitis [Unknown]
  - Actinic keratosis [Unknown]
  - Diarrhoea [Unknown]
  - Perivascular dermatitis [Unknown]
  - Skin papilloma [Unknown]
  - Cerumen impaction [Unknown]
  - Osteoarthritis [Unknown]
  - Bursitis [Unknown]
  - Knee deformity [Unknown]
  - Bunion [Unknown]
  - Hypoaesthesia [Unknown]
  - Fatigue [Unknown]
  - Vulvovaginal pruritus [Unknown]
  - Treatment noncompliance [Unknown]
  - Hyperlipidaemia [Unknown]
  - Cataract [Unknown]
  - Arthropathy [Unknown]
  - Arthritis [Unknown]
  - Diverticulum [Unknown]
  - Fall [None]
